FAERS Safety Report 9891239 (Version 1)
Quarter: 2014Q1

REPORT INFORMATION
  Report Type: Spontaneous
  Country: GB (occurrence: GB)
  Receive Date: 20140212
  Receipt Date: 20140212
  Transmission Date: 20141002
  Serious: Yes (Hospitalization, Other)
  Sender: FDA-Public Use
  Company Number: GB-TEVA-460879ISR

PATIENT
  Age: 65 Year
  Sex: Female

DRUGS (3)
  1. LANSOPRAZOLE [Suspect]
     Route: 048
     Dates: start: 20131120, end: 20140107
  2. RAMIPRIL [Concomitant]
     Indication: HYPERTENSION
     Dosage: ONGOING.
     Route: 048
     Dates: start: 20110606
  3. LOPERAMIDE [Concomitant]
     Indication: COLOSTOMY
     Dosage: ONGOING
     Route: 048
     Dates: start: 20131210

REACTIONS (4)
  - Hypomagnesaemia [Recovered/Resolved]
  - Tremor [Recovered/Resolved]
  - Nausea [Recovered/Resolved]
  - Balance disorder [Recovered/Resolved]
